FAERS Safety Report 15540710 (Version 1)
Quarter: 2018Q4

REPORT INFORMATION
  Report Type: Report from Study
  Country: US (occurrence: US)
  Receive Date: 20181023
  Receipt Date: 20181023
  Transmission Date: 20190205
  Serious: Yes (Death, Hospitalization)
  Sender: FDA-Public Use
  Company Number: US-UCBSA-2018036796

PATIENT
  Sex: Male

DRUGS (1)
  1. LACOSAMIDE. [Suspect]
     Active Substance: LACOSAMIDE
     Indication: PARTIAL SEIZURES
     Dosage: UNK
     Dates: start: 20180604

REACTIONS (3)
  - Infarction [Fatal]
  - Seizure [Unknown]
  - Brain herniation [Fatal]

NARRATIVE: CASE EVENT DATE: 2018
